FAERS Safety Report 5700639-7 (Version None)
Quarter: 2008Q2

REPORT INFORMATION
  Report Type: 
  Country: None (occurrence: None)
  Receive Date: 20080410
  Receipt Date: 20080327
  Transmission Date: 20081010
  Serious: Yes (Hospitalization, Other)
  Sender: FDA-Public Use
  Company Number: US-BAYER-200713437BCC

PATIENT
  Age: 95 Year
  Sex: Female
  Weight: 50 kg

DRUGS (7)
  1. ALEVE (CAPLET) [Suspect]
     Indication: PAIN
     Route: 048
  2. ASPIRIN [Suspect]
     Indication: SPINAL COLUMN STENOSIS
  3. DYAZIDE [Concomitant]
  4. NONSTEROIDAL ANTI-INFLAMMATORY DRUGS [Concomitant]
  5. PROPRANOLOL [Concomitant]
  6. QUININE [Concomitant]
  7. ZOLPIDEM [Concomitant]
     Indication: SLEEP DISORDER

REACTIONS (17)
  - ANOREXIA [None]
  - ASTHENIA [None]
  - CONSTIPATION [None]
  - DECREASED APPETITE [None]
  - DEHYDRATION [None]
  - DIVERTICULUM [None]
  - DUODENAL ULCER [None]
  - DYSPNOEA [None]
  - GAIT DISTURBANCE [None]
  - GASTRIC ULCER [None]
  - HAEMATEMESIS [None]
  - IRON DEFICIENCY ANAEMIA [None]
  - MALAISE [None]
  - NAUSEA [None]
  - RENAL FAILURE [None]
  - VOMITING [None]
  - WEIGHT DECREASED [None]
